FAERS Safety Report 10056272 (Version 2)
Quarter: 2014Q2

REPORT INFORMATION
  Report Type: Spontaneous
  Country: US (occurrence: None)
  Receive Date: 20140401
  Receipt Date: 20140508
  Transmission Date: 20141212
  Serious: Yes (Death, Hospitalization, Other)
  Sender: FDA-Public Use
  Company Number: SYM-2014-19108

PATIENT
  Age: 89 Year
  Sex: Female

DRUGS (1)
  1. XENAZINE [Suspect]
     Indication: DYSKINESIA
     Dosage: 3 IN 1 D
     Route: 048
     Dates: start: 20120917

REACTIONS (1)
  - Hospitalisation [None]
